FAERS Safety Report 8132281-5 (Version None)
Quarter: 2012Q1

REPORT INFORMATION
  Report Type: 
  Country: None (occurrence: None)
  Receive Date: 20120208
  Receipt Date: 20120123
  Transmission Date: 20120608
  Serious: Yes (Hospitalization)
  Sender: FDA-Public Use
  Company Number: DSA_53407_2012

PATIENT
  Age: 72 Year
  Sex: Male

DRUGS (8)
  1. NOCTRAN (NOCTRAN-ACEPROMAZINE MALEATE (+) ACEPROMETAZINE MALEATE (+) C [Suspect]
     Indication: PRODUCT USED FOR UNKNOWN INDICATION
     Dosage: 10 MG QD ORAL
     Route: 048
     Dates: end: 20111216
  2. ASPIRIN [Concomitant]
  3. ENALAPRIL MALEATE [Suspect]
     Indication: HYPERTENSION
     Dosage: 5 MG QD ORAL
     Route: 048
     Dates: end: 20111216
  4. LORAZEPAM [Suspect]
     Indication: ANXIETY
     Dosage: 2.5 MG BID ORAL
     Route: 048
     Dates: end: 20111216
  5. LEVOTHYROXINE SODIUM [Concomitant]
  6. DILTIAZEM HCL [Concomitant]
  7. PLAVIX [Concomitant]
  8. SIMVASTATIN [Concomitant]

REACTIONS (9)
  - VENTRICULAR EXTRASYSTOLES [None]
  - ORTHOSTATIC HYPOTENSION [None]
  - HAEMOGLOBIN DECREASED [None]
  - BLOOD SODIUM DECREASED [None]
  - ATRIAL FIBRILLATION [None]
  - OESOPHAGEAL ULCER [None]
  - DRUG INTERACTION [None]
  - FALL [None]
  - HAEMATEMESIS [None]
